FAERS Safety Report 8249998-4 (Version None)
Quarter: 2012Q2

REPORT INFORMATION
  Report Type: 
  Country: None (occurrence: None)
  Receive Date: 20120402
  Receipt Date: 20120323
  Transmission Date: 20120825
  Serious: Yes (Hospitalization)
  Sender: FDA-Public Use
  Company Number: IT-NOVOPROD-348128

PATIENT
  Age: 87 Year
  Sex: Male

DRUGS (7)
  1. VASERETIC [Concomitant]
     Dosage: 20MG/12.5MG, 1 TAB, QD
     Route: 048
     Dates: start: 20111115, end: 20120320
  2. PROSTIDE                           /00726902/ [Concomitant]
     Dosage: 1 TAB, QD
     Route: 048
  3. OMEPRAZOLE [Concomitant]
     Dosage: 1 TAB, QD
     Route: 048
  4. REPAGLINIDE [Suspect]
     Indication: DIABETES MELLITUS
     Dosage: 2 TAB, QD
     Route: 048
     Dates: start: 20111115
  5. LACIREX [Concomitant]
     Dosage: 1 TAB, QD
     Route: 048
  6. TAMSULOSIN HYDROCHLORIDE [Concomitant]
     Dosage: 1 TAB, QD
     Route: 048
  7. HUMULIN R [Concomitant]
     Dosage: 10 IU, QD
     Route: 058

REACTIONS (2)
  - HYPERGLYCAEMIA [None]
  - HYPERKALAEMIA [None]
